FAERS Safety Report 4314942-9 (Version None)
Quarter: 2004Q1

REPORT INFORMATION
  Report Type: 
  Country: None (occurrence: None)
  Receive Date: 20040310
  Receipt Date: 20040310
  Transmission Date: 20041129
  Serious: Yes (Other)
  Sender: FDA-Public Use
  Company Number: None

PATIENT
  Sex: Female
  Weight: 54.4316 kg

DRUGS (2)
  1. ZOLOFT [Suspect]
     Indication: ANXIETY
     Dosage: 100 MG ONCE DAILY ORAL
     Route: 048
     Dates: start: 20000220, end: 20040309
  2. ZOLOFT [Suspect]
     Indication: DEPRESSION
     Dosage: 100 MG ONCE DAILY ORAL
     Route: 048
     Dates: start: 20000220, end: 20040309

REACTIONS (1)
  - DIZZINESS [None]
